FAERS Safety Report 15114850 (Version 1)
Quarter: 2018Q2

REPORT INFORMATION
  Report Type: Spontaneous
  Country: US (occurrence: US)
  Receive Date: 20180612
  Receipt Date: 20180612
  Transmission Date: 20180711
  Serious: Yes (Other)
  Sender: FDA-Public Use
  Company Number: None

PATIENT
  Age: 40 Year
  Sex: Female
  Weight: 75.6 kg

DRUGS (1)
  1. SPIRONALACTONE [Suspect]
     Active Substance: SPIRONOLACTONE

REACTIONS (1)
  - Asthenia [None]

NARRATIVE: CASE EVENT DATE: 20180525
